FAERS Safety Report 6722214-8 (Version None)
Quarter: 2010Q2

REPORT INFORMATION
  Report Type: 
  Country: None (occurrence: None)
  Receive Date: 20100512
  Receipt Date: 20100429
  Transmission Date: 20101027
  Serious: Yes (Hospitalization)
  Sender: FDA-Public Use
  Company Number: AT-ELI_LILLY_AND_COMPANY-AT201001003896

PATIENT
  Age: 34 Year
  Sex: Male
  Weight: 105 kg

DRUGS (5)
  1. ZYPREXA [Suspect]
     Indication: SCHIZOAFFECTIVE DISORDER
     Dosage: 25 MG, DAILY (1/D)
     Route: 048
     Dates: start: 20090723, end: 20100201
  2. COMPENSAN [Concomitant]
     Indication: DRUG DEPENDENCE
     Dosage: UNK, UNKNOWN
     Route: 065
     Dates: start: 20070101
  3. DEPAKENE [Concomitant]
     Dosage: 2000 MG, DAILY (1/D)
     Route: 065
     Dates: start: 20070101
  4. TRAZODONE HCL [Concomitant]
     Dosage: 150 MG, DAILY (1/D)
     Route: 065
     Dates: start: 20070101
  5. ANXIOLIT [Concomitant]
     Dosage: 50 MG, UNK
     Dates: start: 20070101

REACTIONS (8)
  - ABDOMINAL PAIN UPPER [None]
  - ALANINE AMINOTRANSFERASE INCREASED [None]
  - ASPARTATE AMINOTRANSFERASE INCREASED [None]
  - DIARRHOEA [None]
  - DIPLOPIA [None]
  - DIZZINESS [None]
  - HYPONATRAEMIA [None]
  - OVERDOSE [None]
